FAERS Safety Report 7815740-1 (Version None)
Quarter: 2011Q4

REPORT INFORMATION
  Report Type: 
  Country: None (occurrence: None)
  Receive Date: 20111014
  Receipt Date: 20111013
  Transmission Date: 20120403
  Serious: Yes (Other)
  Sender: FDA-Public Use
  Company Number: GB-ABBOTT-11P-167-0853421-00

PATIENT
  Sex: Male

DRUGS (1)
  1. HUMIRA [Suspect]
     Indication: ANKYLOSING SPONDYLITIS
     Route: 058
     Dates: start: 20110601

REACTIONS (4)
  - HEART RATE INCREASED [None]
  - DYSPEPSIA [None]
  - FLATULENCE [None]
  - SUPRAVENTRICULAR TACHYCARDIA [None]
